FAERS Safety Report 9853970 (Version 2)
Quarter: 2014Q1

REPORT INFORMATION
  Report Type: Spontaneous
  Country: US (occurrence: US)
  Receive Date: 20140129
  Receipt Date: 20140213
  Transmission Date: 20141002
  Serious: Yes (Other)
  Sender: FDA-Public Use
  Company Number: US-PFIZER INC-2014024939

PATIENT
  Age: 39 Year
  Sex: Female
  Weight: 70.75 kg

DRUGS (3)
  1. LYRICA [Suspect]
     Indication: NEURALGIA
     Dosage: 100 MG, 2X/DAY
     Dates: start: 20131029
  2. LYRICA [Suspect]
     Indication: PERIPHERAL NERVE INJURY
  3. TOPAMAX [Concomitant]
     Indication: MIGRAINE
     Dosage: 100 MG, 2X/DAY

REACTIONS (2)
  - Off label use [Unknown]
  - Weight increased [Unknown]
